FAERS Safety Report 17388051 (Version 2)
Quarter: 2020Q1

REPORT INFORMATION
  Report Type: Spontaneous
  Country: US (occurrence: US)
  Receive Date: 20200207
  Receipt Date: 20200302
  Transmission Date: 20200409
  Serious: No
  Sender: FDA-Public Use
  Company Number: US-MYLANLABS-2020M1012100

PATIENT
  Sex: Male

DRUGS (1)
  1. DYMISTA [Suspect]
     Active Substance: AZELASTINE HYDROCHLORIDE\FLUTICASONE PROPIONATE
     Indication: PRODUCT USED FOR UNKNOWN INDICATION
     Dosage: UNK, QD
     Route: 045

REACTIONS (5)
  - Off label use [Not Recovered/Not Resolved]
  - Product dose omission [Unknown]
  - Drug delivery system issue [Unknown]
  - Incorrect dose administered by product [Unknown]
  - Product use issue [Not Recovered/Not Resolved]
